FAERS Safety Report 25089542 (Version 1)
Quarter: 2025Q1

REPORT INFORMATION
  Report Type: Other
  Country: CM (occurrence: CM)
  Receive Date: 20250318
  Receipt Date: 20250318
  Transmission Date: 20250408
  Serious: Yes (Hospitalization, Other)
  Sender: COREPHARMA LLC
  Company Number: CM-CorePharma LLC-2173144

PATIENT
  Age: 29 Year
  Sex: Male

DRUGS (2)
  1. DEXAMETHASONE [Suspect]
     Active Substance: DEXAMETHASONE
     Indication: Skin ulcer
  2. DICLOFENAC SODIUM [Suspect]
     Active Substance: DICLOFENAC SODIUM

REACTIONS (5)
  - Shock haemorrhagic [Recovered/Resolved]
  - Intentional product misuse [Unknown]
  - Product use in unapproved indication [Unknown]
  - Duodenal ulcer perforation [Recovered/Resolved]
  - Upper gastrointestinal haemorrhage [Recovered/Resolved]
